FAERS Safety Report 17191767 (Version 1)
Quarter: 2019Q4

REPORT INFORMATION
  Report Type: Spontaneous
  Country: SE (occurrence: SE)
  Receive Date: 20191223
  Receipt Date: 20191223
  Transmission Date: 20200122
  Serious: Yes (Hospitalization)
  Sender: FDA-Public Use
  Company Number: SE-PFIZER INC-2019547400

PATIENT
  Age: 20 Year
  Sex: Male

DRUGS (2)
  1. SERTRALINE HCL [Suspect]
     Active Substance: SERTRALINE HYDROCHLORIDE
     Dosage: 150 MG (3 PIECES PER 50MG), UNK
     Dates: start: 20180307, end: 20180307
  2. PROPAVAN [Suspect]
     Active Substance: PROPIOMAZINE
     Dosage: 2 DF, UNK
     Route: 048
     Dates: start: 20180307, end: 20180307

REACTIONS (4)
  - Intentional overdose [Unknown]
  - Lethargy [Unknown]
  - Intentional self-injury [Unknown]
  - Abdominal pain [Unknown]

NARRATIVE: CASE EVENT DATE: 20180307
